FAERS Safety Report 5827139-8 (Version None)
Quarter: 2008Q3

REPORT INFORMATION
  Report Type: 
  Country: None (occurrence: None)
  Receive Date: 20080729
  Receipt Date: 20080729
  Transmission Date: 20090109
  Serious: No
  Sender: FDA-Public Use
  Company Number: None

PATIENT
  Sex: Male
  Weight: 106.5953 kg

DRUGS (1)
  1. METOPROLOL SUCCINATE [Suspect]
     Indication: CARDIAC DISORDER
     Dosage: 1 DAILY PO
     Route: 048
     Dates: start: 20080207, end: 20080728

REACTIONS (6)
  - CHILLS [None]
  - DIZZINESS [None]
  - HYPERHIDROSIS [None]
  - PHARMACEUTICAL PRODUCT COMPLAINT [None]
  - STOMACH DISCOMFORT [None]
  - VOMITING [None]
